FAERS Safety Report 24617274 (Version 1)
Quarter: 2024Q4

REPORT INFORMATION
  Report Type: Report from Study
  Country: US (occurrence: US)
  Receive Date: 20241114
  Receipt Date: 20241114
  Transmission Date: 20250114
  Serious: Yes (Other)
  Sender: ALEXION PHARMACEUTICALS
  Company Number: US-AstraZeneca-CH-00729204A

PATIENT

DRUGS (4)
  1. SELUMETINIB [Suspect]
     Active Substance: SELUMETINIB
  2. SELUMETINIB [Suspect]
     Active Substance: SELUMETINIB
  3. SELUMETINIB [Suspect]
     Active Substance: SELUMETINIB
  4. SELUMETINIB [Suspect]
     Active Substance: SELUMETINIB

REACTIONS (5)
  - Papilloedema [Unknown]
  - Visual impairment [Unknown]
  - Viral infection [Unknown]
  - Wheezing [Unknown]
  - Eczema [Unknown]
